FAERS Safety Report 13348258 (Version 1)
Quarter: 2017Q1

REPORT INFORMATION
  Report Type: Spontaneous
  Country: US (occurrence: US)
  Receive Date: 20170319
  Receipt Date: 20170319
  Transmission Date: 20170428
  Serious: No
  Sender: FDA-Public Use
  Company Number: US-SHIRE-US201706051

PATIENT
  Sex: Female

DRUGS (2)
  1. REFRESH LIQUIGEL [Concomitant]
     Active Substance: CARBOXYMETHYLCELLULOSE SODIUM
     Indication: DRY EYE
     Dosage: UNK, UNKNOWN
     Route: 047
  2. XIIDRA [Suspect]
     Active Substance: LIFITEGRAST
     Indication: DRY EYE
     Dosage: 1 GTT, 2X/DAY:BID (1 DROP EACH EYE TWICE A DAY.)
     Route: 047

REACTIONS (6)
  - Instillation site discharge [Recovered/Resolved]
  - Inappropriate schedule of drug administration [Unknown]
  - Product quality issue [Unknown]
  - Instillation site lacrimation [Recovered/Resolved]
  - Instillation site reaction [Recovered/Resolved]
  - Instillation site pain [Recovered/Resolved]
